FAERS Safety Report 7626385-0 (Version None)
Quarter: 2011Q3

REPORT INFORMATION
  Report Type: 
  Country: None (occurrence: None)
  Receive Date: 20110721
  Receipt Date: 20110718
  Transmission Date: 20111222
  Serious: Yes (Other)
  Sender: FDA-Public Use
  Company Number: PHHO2011SY11295

PATIENT
  Sex: Female
  Weight: 88 kg

DRUGS (7)
  1. ZOLEDRONIC [Suspect]
     Indication: BREAST CANCER
     Dosage: 4 MG, EVERY 3 MONTHS
     Route: 042
     Dates: start: 20040927, end: 20050210
  2. TENORMIN [Concomitant]
     Indication: HYPERTENSION
  3. VITAMIN D [Concomitant]
  4. CALCIUM CARBONATE [Concomitant]
  5. LETROZOLE [Suspect]
     Indication: BREAST CANCER
     Dosage: 2.5 MG DAILY
     Route: 048
  6. TAMOXIFEN CITRATE [Concomitant]
     Indication: BREAST CANCER
     Dosage: UNK
     Dates: start: 20001029, end: 20040319
  7. CAL-D-VITA [Concomitant]
     Indication: OSTEOPOROSIS

REACTIONS (1)
  - DEMENTIA [None]
